FAERS Safety Report 7060719-3 (Version None)
Quarter: 2010Q4

REPORT INFORMATION
  Report Type: 
  Country: None (occurrence: None)
  Receive Date: 20101025
  Receipt Date: 20101014
  Transmission Date: 20110411
  Serious: Yes (Hospitalization)
  Sender: FDA-Public Use
  Company Number: JP-ROCHE-730738

PATIENT
  Sex: Female
  Weight: 52 kg

DRUGS (2)
  1. BEVACIZUMAB [Suspect]
     Indication: MALIGNANT GLIOMA
     Dosage: ROUTE: INTRAVENOUS (NOT OTHERWISE SPECIFIED), FORM: INJECTION.
     Route: 041
     Dates: start: 20100901, end: 20100916
  2. OLMETEC [Concomitant]
     Dosage: NOTE: ADMINISTERING IN MONITORING.
     Route: 048
     Dates: start: 20100824

REACTIONS (1)
  - APPENDICITIS [None]
